FAERS Safety Report 19967160 (Version 2)
Quarter: 2021Q4

REPORT INFORMATION
  Report Type: Spontaneous
  Country: CN (occurrence: CN)
  Receive Date: 20211019
  Receipt Date: 20211203
  Transmission Date: 20220303
  Serious: Yes (Hospitalization, Other)
  Sender: FDA-Public Use
  Company Number: CN-BLUEPRINT MEDICINES CORPORATION-SO-CN-2021-001648

PATIENT
  Age: 46 Year
  Sex: Female

DRUGS (1)
  1. GAVRETO [Suspect]
     Active Substance: PRALSETINIB
     Indication: Lung adenocarcinoma
     Route: 048
     Dates: start: 202108

REACTIONS (7)
  - Pulmonary embolism [Unknown]
  - Hepatic function abnormal [Unknown]
  - Pneumonia [Unknown]
  - Mouth ulceration [Unknown]
  - Oedema [Unknown]
  - Cough [Unknown]
  - Asthenia [Unknown]
